FAERS Safety Report 9986768 (Version 1)
Quarter: 2014Q1

REPORT INFORMATION
  Report Type: Report from Study
  Country: US (occurrence: US)
  Receive Date: 20140307
  Receipt Date: 20140307
  Transmission Date: 20141002
  Serious: No
  Sender: FDA-Public Use
  Company Number: US-ABBVIE-13P-163-1076047-00

PATIENT
  Age: 58 Year
  Sex: Male

DRUGS (3)
  1. HUMIRA [Suspect]
     Indication: PSORIASIS
     Dosage: LOADING DOSE
     Dates: start: 20130409
  2. MS CONTIN [Concomitant]
     Indication: BACK PAIN
     Dosage: UP TO 3 TIMES A DAY
  3. OXYCODONE [Concomitant]
     Indication: BACK PAIN
     Dosage: UP TO 3 TIMES A DAY

REACTIONS (4)
  - Tremor [Not Recovered/Not Resolved]
  - Joint swelling [Not Recovered/Not Resolved]
  - Headache [Not Recovered/Not Resolved]
  - Ear disorder [Not Recovered/Not Resolved]
